FAERS Safety Report 19378177 (Version 1)
Quarter: 2021Q2

REPORT INFORMATION
  Report Type: Other
  Country: CN (occurrence: CN)
  Receive Date: 20210605
  Receipt Date: 20210605
  Transmission Date: 20210717
  Serious: Yes (Death, Other)
  Sender: FDA-Public Use
  Company Number: CN-ROCHE-2841136

PATIENT
  Age: 70 Year
  Sex: Female

DRUGS (11)
  1. 5?FLUOROURACIL [Concomitant]
     Active Substance: FLUOROURACIL
  2. CRIZOTINIB [Concomitant]
     Active Substance: CRIZOTINIB
     Dosage: (250 MG, TWICE A DAY)
     Route: 048
     Dates: start: 20190710
  3. CETUXIMAB. [Concomitant]
     Active Substance: CETUXIMAB
  4. LORLATINIB [Concomitant]
     Active Substance: LORLATINIB
     Dosage: 75 MG QD
     Dates: start: 20191209
  5. LORLATINIB [Concomitant]
     Active Substance: LORLATINIB
     Dosage: INCREASED THE DOSE TO 100 MG QD
  6. CAPECITABINE. [Suspect]
     Active Substance: CAPECITABINE
     Indication: COLORECTAL CANCER METASTATIC
     Dosage: DAY1? DAY 14
     Route: 048
  7. OXALIPLATIN. [Suspect]
     Active Substance: OXALIPLATIN
     Dosage: D1
     Route: 065
  8. LEUCOVORIN. [Concomitant]
     Active Substance: LEUCOVORIN
  9. 5?FLUOROURACIL [Concomitant]
     Active Substance: FLUOROURACIL
     Dosage: FOR 46 HOURS, Q2W
  10. ALECTINIB. [Concomitant]
     Active Substance: ALECTINIB
     Dosage: (600 MG TWICE A DAY)
  11. OXALIPLATIN. [Suspect]
     Active Substance: OXALIPLATIN
     Indication: COLORECTAL CANCER METASTATIC
     Route: 065

REACTIONS (1)
  - Intestinal obstruction [Unknown]
